FAERS Safety Report 15475923 (Version 7)
Quarter: 2018Q4

REPORT INFORMATION
  Report Type: Spontaneous
  Country: GB (occurrence: GB)
  Receive Date: 20181009
  Receipt Date: 20181120
  Transmission Date: 20190205
  Serious: Yes (Death, Hospitalization, Other)
  Sender: FDA-Public Use
  Company Number: PHHY2018GB106502

PATIENT
  Age: 81 Year
  Sex: Female

DRUGS (5)
  1. DEXAMETHASONE. [Suspect]
     Active Substance: DEXAMETHASONE
     Dosage: 10 MG, UNK
     Route: 065
  2. REVLIMID [Concomitant]
     Active Substance: LENALIDOMIDE
     Indication: PRODUCT USED FOR UNKNOWN INDICATION
     Dosage: UNK
     Route: 065
  3. DEXAMETHASONE. [Suspect]
     Active Substance: DEXAMETHASONE
     Indication: PRODUCT USED FOR UNKNOWN INDICATION
     Dosage: 20 MG, UNK
     Route: 065
  4. LENALIDOMIDE [Concomitant]
     Active Substance: LENALIDOMIDE
     Indication: PRODUCT USED FOR UNKNOWN INDICATION
     Dosage: UNK
     Route: 065
  5. IXAZOMIB [Suspect]
     Active Substance: IXAZOMIB
     Indication: PLASMA CELL MYELOMA
     Dosage: UNK
     Route: 048

REACTIONS (12)
  - Tremor [Not Recovered/Not Resolved]
  - Oedema peripheral [Unknown]
  - Seizure [Unknown]
  - Lower respiratory tract infection [Not Recovered/Not Resolved]
  - Death [Fatal]
  - Constipation [Unknown]
  - Diarrhoea [Not Recovered/Not Resolved]
  - Fall [Unknown]
  - Pyrexia [Recovered/Resolved]
  - Rash [Unknown]
  - Malaise [Not Recovered/Not Resolved]
  - Cardiac arrest [Unknown]
